FAERS Safety Report 14950420 (Version 2)
Quarter: 2024Q4

REPORT INFORMATION
  Report Type: Spontaneous
  Country: HN (occurrence: HN)
  Receive Date: 20180530
  Receipt Date: 20241125
  Transmission Date: 20250115
  Serious: Yes (Disabling, Other)
  Sender: ROCHE
  Company Number: HN-002147023-PHHY2018HN007488

PATIENT
  Age: 70 Year
  Sex: Female

DRUGS (2)
  1. RANIBIZUMAB [Suspect]
     Active Substance: RANIBIZUMAB
     Indication: Macular oedema
     Dosage: UNK UNK, QMO
     Route: 065
     Dates: start: 20180403
  2. RANIBIZUMAB [Suspect]
     Active Substance: RANIBIZUMAB
     Indication: Retinal vein occlusion
     Route: 065

REACTIONS (5)
  - Fibrosis [Not Recovered/Not Resolved]
  - Vitreous disorder [Not Recovered/Not Resolved]
  - Blindness unilateral [Unknown]
  - Iris adhesions [Unknown]
  - Eye inflammation [Unknown]

NARRATIVE: CASE EVENT DATE: 20180406
